FAERS Safety Report 5778370-1 (Version None)
Quarter: 2008Q2

REPORT INFORMATION
  Report Type: 
  Country: None (occurrence: None)
  Receive Date: 20080616
  Receipt Date: 20071207
  Transmission Date: 20081010
  Serious: Yes (Other)
  Sender: FDA-Public Use
  Company Number: WAES 0712USA02593

PATIENT
  Sex: Male

DRUGS (2)
  1. COZAAR [Suspect]
     Indication: BLOOD PRESSURE
  2. PRINIVIL [Suspect]
     Indication: BLOOD PRESSURE

REACTIONS (1)
  - RENAL FAILURE [None]
